FAERS Safety Report 20450656 (Version 1)
Quarter: 2022Q1

REPORT INFORMATION
  Report Type: Spontaneous
  Country: US (occurrence: None)
  Receive Date: 20220209
  Receipt Date: 20220209
  Transmission Date: 20220423
  Serious: Yes (Hospitalization, Other)
  Sender: FDA-Public Use
  Company Number: None

PATIENT
  Age: 22 Year
  Sex: Female
  Weight: 81.4 kg

DRUGS (1)
  1. SOTROVIMAB [Suspect]
     Active Substance: SOTROVIMAB
     Indication: COVID-19
     Dosage: OTHER FREQUENCY : ONCE;?
     Route: 042
     Dates: start: 20220204, end: 20220204

REACTIONS (6)
  - Headache [None]
  - Nausea [None]
  - Feeling abnormal [None]
  - Blood pressure increased [None]
  - Respiratory rate increased [None]
  - Dropped head syndrome [None]

NARRATIVE: CASE EVENT DATE: 20220204
